FAERS Safety Report 10152915 (Version 1)
Quarter: 2014Q2

REPORT INFORMATION
  Report Type: Spontaneous
  Country: US (occurrence: US)
  Receive Date: 20140505
  Receipt Date: 20140505
  Transmission Date: 20141212
  Serious: Yes (Hospitalization)
  Sender: FDA-Public Use
  Company Number: US-GLAXOSMITHKLINE-A1071839A

PATIENT
  Sex: Male

DRUGS (2)
  1. FLOVENT [Suspect]
     Indication: ASTHMA
     Dosage: 110MCG UNKNOWN
     Route: 055
     Dates: start: 20140219
  2. SEREVENT [Suspect]
     Indication: ASTHMA
     Dosage: 50MCG UNKNOWN
     Route: 065
     Dates: start: 20140219

REACTIONS (1)
  - Investigation [Unknown]
